FAERS Safety Report 15285845 (Version 1)
Quarter: 2018Q3

REPORT INFORMATION
  Report Type: Spontaneous
  Country: US (occurrence: US)
  Receive Date: 20180802
  Receipt Date: 20180802
  Transmission Date: 20181010
  Serious: Yes (Other)
  Sender: FDA-Public Use
  Company Number: None

PATIENT
  Age: 66 Year
  Sex: Female
  Weight: 72.45 kg

DRUGS (8)
  1. CYMBALTA [Concomitant]
     Active Substance: DULOXETINE HYDROCHLORIDE
  2. WELLBUTRIN [Concomitant]
     Active Substance: BUPROPION HYDROCHLORIDE
  3. TRAMADOL. [Concomitant]
     Active Substance: TRAMADOL
  4. CALCIUM [Concomitant]
     Active Substance: CALCIUM
  5. ALENDRONATE [Suspect]
     Active Substance: ALENDRONATE SODIUM
     Indication: OSTEOPOROSIS
     Dosage: ?          QUANTITY:4 TABLET(S);OTHER FREQUENCY:1 TIME PER WEEK;?
     Route: 048
     Dates: start: 20180718, end: 20180725
  6. OMEPRAZOLE. [Concomitant]
     Active Substance: OMEPRAZOLE
  7. FISH OIL [Concomitant]
     Active Substance: FISH OIL
  8. MULTI VITAMIN [Concomitant]
     Active Substance: VITAMINS

REACTIONS (3)
  - Bone pain [None]
  - Back pain [None]
  - Neck pain [None]

NARRATIVE: CASE EVENT DATE: 20180727
